FAERS Safety Report 12406580 (Version 2)
Quarter: 2016Q2

REPORT INFORMATION
  Report Type: Spontaneous
  Country: JP (occurrence: JP)
  Receive Date: 20160526
  Receipt Date: 20160627
  Transmission Date: 20160815
  Serious: Yes (Hospitalization, Other)
  Sender: FDA-Public Use
  Company Number: JP-TEVA-2016-JP-001184J

PATIENT
  Age: 82 Year
  Sex: Male

DRUGS (11)
  1. SENNA [Concomitant]
     Active Substance: SENNA LEAF\SENNOSIDES\SENNOSIDES A AND B
     Dosage: 80 MILLIGRAM DAILY;
     Route: 048
     Dates: start: 20160211, end: 20160218
  2. SLOW-K [Concomitant]
     Active Substance: POTASSIUM CHLORIDE
     Dosage: 2400 MILLIGRAM DAILY;
     Route: 048
     Dates: start: 20160211, end: 20160218
  3. BIOFERMIN R [Concomitant]
     Active Substance: BACILLUS SUBTILIS\LACTOBACILLUS ACIDOPHILUS\STREPTOCOCCUS FAECAIS
     Dosage: 18 DOSAGE FORMS DAILY;
     Route: 048
     Dates: start: 20160211, end: 20160218
  4. TRICHLORMETHIAZIDE [Concomitant]
     Active Substance: TRICHLORMETHIAZIDE
     Dosage: 1 MILLIGRAM DAILY;
     Route: 048
     Dates: start: 20160211, end: 20160218
  5. CARDENALIN OD [Concomitant]
     Dosage: 1 MILLIGRAM DAILY;
     Route: 048
     Dates: start: 20160211, end: 20160218
  6. FEBURIC [Concomitant]
     Active Substance: FEBUXOSTAT
     Dosage: 10 MILLIGRAM DAILY;
     Route: 048
     Dates: start: 20160211, end: 20160218
  7. WARFARIN [Concomitant]
     Active Substance: WARFARIN
     Dosage: 3 MILLIGRAM DAILY;
     Route: 048
     Dates: start: 20160211, end: 20160218
  8. ARTIST [Concomitant]
     Active Substance: CARVEDILOL
     Dosage: 15 MILLIGRAM DAILY;
     Route: 048
     Dates: start: 20160211, end: 20160218
  9. FUROSEMIDE TABLET 20MG ^TEVA^ [Suspect]
     Active Substance: FUROSEMIDE
     Indication: CHRONIC KIDNEY DISEASE
     Dosage: 80 MILLIGRAM DAILY;
     Route: 048
     Dates: start: 20160211, end: 20160211
  10. FUROSEMIDE TABLET 40MG ^TEVA^ [Suspect]
     Active Substance: FUROSEMIDE
     Indication: CHRONIC KIDNEY DISEASE
     Dosage: 40 MILLIGRAM DAILY;
     Route: 048
     Dates: start: 20160212, end: 20160215
  11. NIFEDIPINE CR [Concomitant]
     Active Substance: NIFEDIPINE
     Dosage: 160 MILLIGRAM DAILY;
     Route: 048
     Dates: start: 20160211, end: 20160219

REACTIONS (2)
  - Product substitution issue [Unknown]
  - Pemphigoid [Recovered/Resolved]

NARRATIVE: CASE EVENT DATE: 20160215
